FAERS Safety Report 9508549 (Version 2)
Quarter: 2013Q3

REPORT INFORMATION
  Report Type: Report from Study
  Country: US (occurrence: US)
  Receive Date: 20130909
  Receipt Date: 20130909
  Transmission Date: 20140515
  Serious: Yes (Hospitalization)
  Sender: FDA-Public Use
  Company Number: US-ROCHE-1224534

PATIENT
  Sex: Male

DRUGS (2)
  1. PEGASYS [Suspect]
     Indication: CHRONIC HEPATITIS C
     Route: 065
     Dates: start: 20130308, end: 20130818
  2. RIBAVIRIN [Suspect]
     Indication: CHRONIC HEPATITIS C
     Dosage: DAILY
     Route: 065
     Dates: start: 20130308, end: 20130818

REACTIONS (7)
  - Heart rate increased [Unknown]
  - Influenza like illness [Unknown]
  - Arthralgia [Recovering/Resolving]
  - Headache [Unknown]
  - Fatigue [Unknown]
  - Insomnia [Recovering/Resolving]
  - Cough [Unknown]
